FAERS Safety Report 5043143-4 (Version None)
Quarter: 2006Q2

REPORT INFORMATION
  Report Type: 
  Country: None (occurrence: None)
  Receive Date: 20060628
  Receipt Date: 20060607
  Transmission Date: 20061013
  Serious: Yes (Hospitalization, Other)
  Sender: FDA-Public Use
  Company Number: FR200604001569

PATIENT
  Age: 76 Year
  Sex: Female

DRUGS (11)
  1. FORTEO [Suspect]
     Indication: OSTEOPOROSIS
     Dosage: 20 UG DAILY (1/D) SUBCUTANEOUS
     Route: 058
     Dates: start: 20060331, end: 20060602
  2. FORTEO PEN (FORTEO PEN) [Concomitant]
  3. NITROGLYCERIN [Concomitant]
  4. SERC [Concomitant]
  5. VASTAREL (TRIMETAZIDINE HYDROCHLORIDE) [Concomitant]
  6. MOTILIUM [Concomitant]
  7. ZESTRIL [Concomitant]
  8. ATORVASTATIN CALCIUM [Concomitant]
  9. GAVISCON [Concomitant]
  10. ACETAMINOPHEN [Concomitant]
  11. ESOMERPAZOLE (ESOMEPRAZOLE) [Concomitant]

REACTIONS (8)
  - CONDITION AGGRAVATED [None]
  - HEADACHE [None]
  - HYPERGLYCAEMIA [None]
  - HYPOGLYCAEMIA [None]
  - LOSS OF CONSCIOUSNESS [None]
  - MALAISE [None]
  - SUFFOCATION FEELING [None]
  - VERTIGO [None]
